FAERS Safety Report 15552628 (Version 2)
Quarter: 2018Q4

REPORT INFORMATION
  Report Type: Spontaneous
  Country: GB (occurrence: FR)
  Receive Date: 20181025
  Receipt Date: 20181029
  Transmission Date: 20190205
  Serious: Yes (Other)
  Sender: FDA-Public Use
  Company Number: FR-FRESENIUS KABI-FK201810999

PATIENT
  Age: 52 Year
  Sex: Female
  Weight: 50.2 kg

DRUGS (20)
  1. VORICONAZOLE. [Suspect]
     Active Substance: VORICONAZOLE
     Dosage: 400MG/DAY
     Route: 042
     Dates: start: 20181005
  2. VALACICLOVIR [Concomitant]
     Active Substance: VALACYCLOVIR HYDROCHLORIDE
  3. ESCITALOPRAM OXALATE. [Suspect]
     Active Substance: ESCITALOPRAM OXALATE
     Indication: DEPRESSION
     Route: 048
     Dates: start: 20181004
  4. HEPARIN SODIUM. [Concomitant]
     Active Substance: HEPARIN SODIUM
  5. SODIUM BICARBONATE/POTASSIUM CHLORIDE/SODIUM CHLORIDE/MACROGOL 3350 [Concomitant]
  6. FENOFIBRATE. [Concomitant]
     Active Substance: FENOFIBRATE
  7. PARAFFIN, LIQUID [Concomitant]
  8. ENTECAVIR MONOHYDRATE [Concomitant]
     Active Substance: ENTECAVIR
  9. CALCIUM FOLINATE [Concomitant]
     Active Substance: LEUCOVORIN CALCIUM
  10. LINEZOLID KABI [Suspect]
     Active Substance: LINEZOLID
     Indication: OPPORTUNISTIC INFECTION PROPHYLAXIS
     Dosage: 1200MG/DAY
     Route: 042
     Dates: start: 20180930
  11. IMIPENEM MONOHYDRATE/CILASTATIN SODIUM [Suspect]
     Active Substance: CILASTATIN SODIUM\IMIPENEM
     Indication: OPPORTUNISTIC INFECTION PROPHYLAXIS
     Dosage: 500/500 MILLIGRAMMES 3 FOIS PAR JOUR
     Route: 042
     Dates: start: 20180925
  12. VORICONAZOLE. [Suspect]
     Active Substance: VORICONAZOLE
     Indication: ASPERGILLUS INFECTION
     Dosage: 300MG/DAY
     Route: 042
     Dates: start: 20181004, end: 20181004
  13. PHLOROGLUCINOL/TRIMETHYLPHLOROGLUCINOL [Concomitant]
  14. HYDROCORTISONE. [Concomitant]
     Active Substance: HYDROCORTISONE
  15. PONATINIB [Concomitant]
     Active Substance: PONATINIB
  16. LANSOPRAZOLE. [Concomitant]
     Active Substance: LANSOPRAZOLE
  17. ZOPICLONE [Concomitant]
     Active Substance: ZOPICLONE
  18. SULFAMETHOXAZOLE/TRIMETHOPRIM [Concomitant]
     Active Substance: SULFAMETHOXAZOLE\TRIMETHOPRIM
  19. TRIMEBUTINE [Concomitant]
     Active Substance: TRIMEBUTINE
  20. HYDROXYZINE [Concomitant]
     Active Substance: HYDROXYZINE HYDROCHLORIDE

REACTIONS (1)
  - Rash maculo-papular [Recovering/Resolving]

NARRATIVE: CASE EVENT DATE: 20181008
